FAERS Safety Report 7974173-8 (Version None)
Quarter: 2011Q4

REPORT INFORMATION
  Report Type: 
  Country: None (occurrence: None)
  Receive Date: 20111213
  Receipt Date: 20111025
  Transmission Date: 20120403
  Serious: No
  Sender: FDA-Public Use
  Company Number: US-BAYER-2011-104167

PATIENT
  Age: 14 Year
  Sex: Female
  Weight: 88 kg

DRUGS (2)
  1. ASTHMA MEDICINE [Concomitant]
     Indication: ASTHMA
     Dosage: UNK UNK, PRN
  2. ALEVE (CAPLET) [Suspect]
     Indication: PAIN
     Dosage: UNK
     Route: 048
     Dates: start: 20111025

REACTIONS (1)
  - NO ADVERSE EVENT [None]
